FAERS Safety Report 11637401 (Version 1)
Quarter: 2015Q4

REPORT INFORMATION
  Report Type: Spontaneous
  Country: US (occurrence: US)
  Receive Date: 20151016
  Receipt Date: 20151016
  Transmission Date: 20160304
  Serious: Yes (Hospitalization, Other)
  Sender: FDA-Public Use
  Company Number: US-HORIZON-PRE-0171-2015

PATIENT
  Age: 54 Year
  Sex: Male

DRUGS (2)
  1. PREDNISONE. [Suspect]
     Active Substance: PREDNISONE
     Dosage: INITIALLY 60 MG DAILY, DECREASED TO 20 MG EVERY 2 DAYS INCREASED TO 60 MG DAILY
  2. DUREZOL [Suspect]
     Active Substance: DIFLUPREDNATE
     Dosage: 1 DROP EVERY HOUR, DECREASED TO 1 DROP EVERY 2 HOURS TO 4X A DAY, INCREASED TO 1 DROP EVERY 2 HOURS

REACTIONS (1)
  - Corneal oedema [Recovered/Resolved]
